FAERS Safety Report 5408406-9 (Version None)
Quarter: 2007Q3

REPORT INFORMATION
  Report Type: 
  Country: None (occurrence: None)
  Receive Date: 20070806
  Receipt Date: 20070720
  Transmission Date: 20080115
  Serious: Yes (Life-Threatening, Hospitalization)
  Sender: FDA-Public Use
  Company Number: DSA_30170_2007

PATIENT
  Sex: Female

DRUGS (6)
  1. TAVOR /00273201/ (TAVOR) 1 MG [Suspect]
     Dosage: 59 MG 1X ORAL
     Route: 048
     Dates: start: 20070627, end: 20070627
  2. CITALOPRAM (CITALOPRAM) 60 MG [Suspect]
     Dosage: 2400 MG 1X ORAL
     Route: 048
     Dates: start: 20070627, end: 20070627
  3. MELPERONE (MELPERONE) 25 MG [Suspect]
     Dosage: 400 MG 1X ORAL
     Route: 048
     Dates: start: 20070627, end: 20070627
  4. SEROQUEL /01270901/ (SEROQUEL) 100 MG [Suspect]
     Dosage: 4000 MG 1X ORAL
     Route: 048
     Dates: start: 20070627
  5. TRIMIPRAMINE (TRIMIPRAMINE) 25 MG [Suspect]
     Dosage: 3000 MG 1X ORAL
     Dates: start: 20070627, end: 20070627
  6. VIVINOX (VIVINOX SCHLAFDRAGEES) 25 MG [Suspect]
     Dosage: 4000 MG 1X ORAL
     Route: 047
     Dates: start: 20070627, end: 20070627

REACTIONS (7)
  - CONVULSION [None]
  - LOSS OF CONSCIOUSNESS [None]
  - MULTIPLE DRUG OVERDOSE [None]
  - SOMNOLENCE [None]
  - SUICIDE ATTEMPT [None]
  - TACHYCARDIA [None]
  - TRANSIENT PSYCHOSIS [None]
